FAERS Safety Report 6416330-8 (Version None)
Quarter: 2009Q4

REPORT INFORMATION
  Report Type: 
  Country: None (occurrence: None)
  Receive Date: 20091027
  Receipt Date: 20091021
  Transmission Date: 20100525
  Serious: Yes (Hospitalization, Other)
  Sender: FDA-Public Use
  Company Number: US-ELI_LILLY_AND_COMPANY-US200910005280

PATIENT
  Sex: Male

DRUGS (18)
  1. HUMALOG [Suspect]
     Indication: TYPE 2 DIABETES MELLITUS
     Dosage: 5 U, EACH MORNING
     Dates: start: 20070101
  2. HUMALOG [Suspect]
     Dosage: 10 U, DAILY (1/D)
     Dates: start: 20070101
  3. HUMALOG [Suspect]
     Dosage: 12 U, EACH EVENING
     Dates: start: 20070101
  4. CYMBALTA [Concomitant]
  5. TYLENOL (CAPLET) [Concomitant]
     Dosage: UNK, AS NEEDED
  6. GLIPIZIDE [Concomitant]
  7. METOCLOPRAMIDE [Concomitant]
  8. FUROSEMIDE [Concomitant]
  9. PLAVIX [Concomitant]
  10. OMEPRAZOLE [Concomitant]
  11. IRON SULFATETHIAMIN COMPOUND TAB [Concomitant]
  12. METOPROLOL [Concomitant]
  13. SPIRONOLACTONE [Concomitant]
  14. METAMUCIL [Concomitant]
  15. MULTI-VITAMIN [Concomitant]
  16. ASPIRIN [Concomitant]
     Dosage: 81 MG, UNK
  17. LANTUS [Concomitant]
  18. FISH OIL [Concomitant]

REACTIONS (2)
  - RECTAL HAEMORRHAGE [None]
  - WEIGHT DECREASED [None]
